FAERS Safety Report 24223737 (Version 1)
Quarter: 2024Q3

REPORT INFORMATION
  Report Type: Spontaneous
  Country: US (occurrence: None)
  Receive Date: 20240816
  Receipt Date: 20240816
  Transmission Date: 20241017
  Serious: Yes (Hospitalization)
  Sender: Public
  Company Number: None

PATIENT
  Age: 82 Year
  Sex: Female
  Weight: 86.4 kg

DRUGS (1)
  1. SOLIFENACIN SUCCINATE [Suspect]
     Active Substance: SOLIFENACIN SUCCINATE
     Indication: Micturition urgency
     Dosage: 10 MG DAILY ORAL
     Route: 048
     Dates: start: 20240714, end: 20240718

REACTIONS (3)
  - Atrial fibrillation [None]
  - Electrocardiogram abnormal [None]
  - Myocardial ischaemia [None]

NARRATIVE: CASE EVENT DATE: 20240717
